FAERS Safety Report 11190845 (Version 1)
Quarter: 2015Q2

REPORT INFORMATION
  Report Type: Spontaneous
  Country: CH (occurrence: CH)
  Receive Date: 20150615
  Receipt Date: 20150615
  Transmission Date: 20150821
  Serious: Yes (Hospitalization, Other)
  Sender: FDA-Public Use
  Company Number: CH-BAYER-2015-328337

PATIENT
  Age: 70 Year
  Sex: Female

DRUGS (18)
  1. ARAVA [Concomitant]
     Active Substance: LEFLUNOMIDE
  2. ASPIRIN CARDIO [Suspect]
     Active Substance: ASPIRIN
     Indication: ISCHAEMIC CEREBRAL INFARCTION
     Dosage: 100 MG, QD
     Route: 048
     Dates: start: 20141126, end: 201501
  3. CHININI SULFAS [Concomitant]
  4. DAFALGAN [Concomitant]
     Active Substance: ACETAMINOPHEN
  5. MEFENAMIC-ACID [Suspect]
     Active Substance: MEFENAMIC ACID
     Dosage: UNK UNK, PRN
     Route: 048
     Dates: end: 201501
  6. ARICEPT [Concomitant]
     Active Substance: DONEPEZIL HYDROCHLORIDE
  7. PREDNISON [Concomitant]
     Active Substance: PREDNISONE
  8. IMODIUM [Concomitant]
     Active Substance: LOPERAMIDE HYDROCHLORIDE
  9. VOLTAREN RAPIDE [Suspect]
     Active Substance: DICLOFENAC POTASSIUM
     Dosage: 50 MG, UNK
     Route: 048
     Dates: start: 2014, end: 201501
  10. ANTRA [Concomitant]
     Active Substance: OMEPRAZOLE
  11. PANTOZOL [Concomitant]
     Active Substance: PANTOPRAZOLE SODIUM
  12. DEANXIT [Concomitant]
     Active Substance: FLUPENTIXOL DIHYDROCHLORIDE\MELITRACEN HYDROCHLORIDE
  13. SEROQUEL [Concomitant]
     Active Substance: QUETIAPINE FUMARATE
  14. IMOVANE [Concomitant]
     Active Substance: ZOPICLONE
  15. TOREM [Concomitant]
     Active Substance: TORSEMIDE
  16. STILNOX [Concomitant]
     Active Substance: ZOLPIDEM TARTRATE
  17. BUSCOPAN [Concomitant]
     Active Substance: BUTYLSCOPOLAMINE BROMIDE
  18. CALCIMAGON-D3 [Concomitant]
     Active Substance: CALCIUM\CHOLECALCIFEROL

REACTIONS (6)
  - Haemorrhagic anaemia [Recovering/Resolving]
  - Gastritis [Recovering/Resolving]
  - Vomiting [Recovering/Resolving]
  - Gastrointestinal haemorrhage [Recovering/Resolving]
  - Diarrhoea [Recovering/Resolving]
  - Intestinal ulcer [Recovering/Resolving]

NARRATIVE: CASE EVENT DATE: 2014
